FAERS Safety Report 6176731 (Version 3)
Quarter: 2017Q1

REPORT INFORMATION
  Report Type: Spontaneous
  Country: JP (occurrence: JP)
  Receive Date: 20061130
  Receipt Date: 20170213
  Transmission Date: 20170429
  Serious: Yes (Hospitalization)
  Sender: FDA-Public Use
  Company Number: JP-BRISTOL-MYERS SQUIBB COMPANY-13589106

PATIENT
  Age: 8 Decade
  Sex: Male

DRUGS (2)
  1. BRIPLATIN [Suspect]
     Active Substance: CISPLATIN
     Indication: COLON CANCER
     Dosage: 30 MG, QMO
     Route: 041
     Dates: start: 20061013, end: 20061027
  2. TS-1 [Suspect]
     Active Substance: GIMERACIL\OTERACIL\TEGAFUR
     Indication: COLON CANCER
     Dosage: 40 MG, BID
     Route: 048
     Dates: start: 20061006, end: 20061027

REACTIONS (1)
  - Pneumonitis [Recovered/Resolved]

NARRATIVE: CASE EVENT DATE: 200610
